FAERS Safety Report 18497140 (Version 1)
Quarter: 2020Q4

REPORT INFORMATION
  Report Type: Report from Study
  Country: US (occurrence: US)
  Receive Date: 20201112
  Receipt Date: 20201112
  Transmission Date: 20210114
  Serious: No
  Sender: FDA-Public Use
  Company Number: NVSC2020US300872

PATIENT
  Sex: Female

DRUGS (1)
  1. AFINITOR [Suspect]
     Active Substance: EVEROLIMUS
     Indication: CARCINOID TUMOUR
     Dosage: 10 MG, QD
     Route: 048

REACTIONS (6)
  - Fatigue [Unknown]
  - Eye infection [Unknown]
  - Chills [Unknown]
  - Peripheral swelling [Unknown]
  - Eye swelling [Unknown]
  - Alopecia [Unknown]
